FAERS Safety Report 6922737-2 (Version None)
Quarter: 2010Q3

REPORT INFORMATION
  Report Type: 
  Country: None (occurrence: None)
  Receive Date: 20100813
  Receipt Date: 20100805
  Transmission Date: 20110219
  Serious: Yes (Hospitalization)
  Sender: FDA-Public Use
  Company Number: AU-BAYER-201022247GPV

PATIENT
  Age: 82 Year
  Sex: Male

DRUGS (28)
  1. ACETYLSALICYLIC ACID SRT [Suspect]
     Indication: PRODUCT USED FOR UNKNOWN INDICATION
     Route: 065
  2. WARFARIN [Suspect]
     Indication: PRODUCT USED FOR UNKNOWN INDICATION
     Route: 048
  3. BLINDED STUDY THERAPY [Suspect]
     Indication: RHEUMATOID ARTHRITIS
     Route: 065
     Dates: start: 20090928, end: 20100317
  4. ACTONEL [Suspect]
     Indication: PRODUCT USED FOR UNKNOWN INDICATION
  5. PHENYTOIN [Suspect]
     Route: 042
     Dates: start: 20100331, end: 20100331
  6. PHENYTOIN [Suspect]
     Route: 048
     Dates: start: 20100401, end: 20100410
  7. KEPPRA [Concomitant]
     Dosage: TOTAL DAILY DOSE: 1000 MG
     Dates: start: 20100411
  8. DIGOXIN [Concomitant]
     Route: 048
     Dates: start: 20100419
  9. DIGOXIN [Concomitant]
     Route: 048
     Dates: end: 20100329
  10. DIGOXIN [Concomitant]
     Route: 048
     Dates: start: 20100329, end: 20100416
  11. LIPITOR [Concomitant]
     Route: 048
     Dates: start: 20100320
  12. CLEXANE [Concomitant]
     Route: 058
     Dates: start: 20100402, end: 20100504
  13. MIDAZOLAM HCL [Concomitant]
     Route: 042
     Dates: start: 20100331, end: 20100331
  14. NITROGLYCERIN [Concomitant]
     Route: 061
     Dates: start: 20100331, end: 20100331
  15. ANDRIOL [Concomitant]
     Dosage: TOTAL DAILY DOSE: 240 MG
     Route: 048
     Dates: start: 20100407, end: 20100408
  16. CALTRATE [Concomitant]
     Route: 048
     Dates: start: 20100401
  17. COLECALCIFEROL [Concomitant]
     Route: 048
     Dates: start: 20100401
  18. COLOXYL WITH SENNA [Concomitant]
     Dosage: TOTAL DAILY DOSE: 4 DF
     Route: 048
     Dates: start: 20100416
  19. COLOXYL WITH SENNA [Concomitant]
     Dosage: TOTAL DAILY DOSE: 4 DF
     Route: 048
     Dates: start: 20100408, end: 20100411
  20. LACTULOSE [Concomitant]
     Dosage: TOTAL DAILY DOSE: 60 ML
     Dates: start: 20100409, end: 20100411
  21. NULYTELY [Concomitant]
     Route: 048
     Dates: start: 20100415, end: 20100418
  22. MICROLAX [Concomitant]
     Route: 054
     Dates: start: 20100410, end: 20100410
  23. GLYCEROL [Concomitant]
     Route: 054
     Dates: start: 20100417, end: 20100417
  24. DUROLAX [Concomitant]
     Route: 054
     Dates: start: 20100418, end: 20100418
  25. ACETAMINOPHEN [Concomitant]
     Route: 048
     Dates: start: 20100413
  26. IRBESARTAN [Concomitant]
     Dates: start: 20091023
  27. LEVOTHYROXINE SODIUM [Concomitant]
     Dates: start: 19700101
  28. METHOTREXATE [Concomitant]
     Indication: RHEUMATOID ARTHRITIS
     Route: 048
     Dates: start: 20050401

REACTIONS (6)
  - CONVULSION [None]
  - HALLUCINATION [None]
  - HEMIPARESIS [None]
  - THALAMIC INFARCTION [None]
  - THERAPEUTIC AGENT TOXICITY [None]
  - TINEA VERSICOLOUR [None]
